FAERS Safety Report 8376409-0 (Version None)
Quarter: 2012Q2

REPORT INFORMATION
  Report Type: 
  Country: None (occurrence: None)
  Receive Date: 20120522
  Receipt Date: 20120516
  Transmission Date: 20120825
  Serious: Yes (Other)
  Sender: FDA-Public Use
  Company Number: PHHY2012JP033582

PATIENT
  Age: 75 Year
  Sex: Male

DRUGS (5)
  1. EXELON [Suspect]
     Dosage: 13.5 MG, DAILY
     Route: 062
     Dates: start: 20120314, end: 20120328
  2. LIDOMEX [Suspect]
     Indication: APPLICATION SITE DERMATITIS
     Route: 062
     Dates: end: 20120328
  3. EXELON [Suspect]
     Dosage: 9.0MG DAILY
     Route: 062
     Dates: start: 20120215, end: 20120314
  4. EXELON [Suspect]
     Indication: DEMENTIA ALZHEIMER'S TYPE
     Dosage: 4.5 MG, DAILY
     Route: 062
     Dates: start: 20120118, end: 20120202
  5. EXELON [Suspect]
     Dosage: 9.0MG DAILY
     Route: 062
     Dates: start: 20120202

REACTIONS (7)
  - APPLICATION SITE DERMATITIS [None]
  - GENERALISED ERYTHEMA [None]
  - APPLICATION SITE SCAB [None]
  - DERMATITIS [None]
  - DRUG HYPERSENSITIVITY [None]
  - APPLICATION SITE BLEEDING [None]
  - ECZEMA [None]
